FAERS Safety Report 7903559-2 (Version None)
Quarter: 2011Q4

REPORT INFORMATION
  Report Type: 
  Country: None (occurrence: None)
  Receive Date: 20111109
  Receipt Date: 20111109
  Transmission Date: 20120403
  Serious: Yes (Life-Threatening)
  Sender: FDA-Public Use
  Company Number: None

PATIENT
  Age: 33 Year
  Sex: Female
  Weight: 70.306 kg

DRUGS (3)
  1. INVEGA [Concomitant]
  2. GEODON [Suspect]
     Indication: BIPOLAR I DISORDER
     Dosage: 1
     Dates: start: 20110415, end: 20110809
  3. DEPAKOTE [Concomitant]
     Indication: ATTENTION DEFICIT/HYPERACTIVITY DISORDER

REACTIONS (7)
  - MATERNAL EXPOSURE DURING PREGNANCY [None]
  - ABDOMINAL PAIN [None]
  - SOMNOLENCE [None]
  - MUSCLE DISORDER [None]
  - MATERNAL DRUGS AFFECTING FOETUS [None]
  - MOTOR DYSFUNCTION [None]
  - ARRHYTHMIA [None]
